FAERS Safety Report 5830525-3 (Version None)
Quarter: 2008Q3

REPORT INFORMATION
  Report Type: 
  Country: None (occurrence: None)
  Receive Date: 20080801
  Receipt Date: 20070626
  Transmission Date: 20090109
  Serious: Yes (Other)
  Sender: FDA-Public Use
  Company Number: US-BRISTOL-MYERS SQUIBB COMPANY-13826508

PATIENT
  Sex: Female
  Weight: 60 kg

DRUGS (2)
  1. COUMADIN [Suspect]
     Dates: start: 20070201
  2. BLACK COHOSH [Suspect]
     Indication: HOT FLUSH

REACTIONS (1)
  - INTERNATIONAL NORMALISED RATIO DECREASED [None]
